FAERS Safety Report 12633691 (Version 1)
Quarter: 2016Q3

REPORT INFORMATION
  Report Type: Spontaneous
  Country: US (occurrence: None)
  Receive Date: 20160808
  Receipt Date: 20160808
  Transmission Date: 20161109
  Serious: Yes (Disabling)
  Sender: FDA-Public Use
  Company Number: None

PATIENT
  Age: 69 Year
  Sex: Male
  Weight: 83.46 kg

DRUGS (15)
  1. FINESTERIDE [Concomitant]
     Active Substance: FINASTERIDE
  2. ALPROZALAM [Concomitant]
  3. VITAMIN B12 [Concomitant]
     Active Substance: CYANOCOBALAMIN
  4. BUPROPRION [Concomitant]
     Active Substance: BUPROPION
  5. VYTORIN [Suspect]
     Active Substance: EZETIMIBE\SIMVASTATIN
     Indication: BLOOD CHOLESTEROL INCREASED
     Dosage: EZETIMIBE-10MG AND SIMVASTATIN 40MG ONE DOSE DAILY@BEDTIME BY MOUTH
     Route: 048
     Dates: start: 20050315, end: 20160207
  6. RECLAST [Concomitant]
     Active Substance: ZOLEDRONIC ACID
  7. SPIRIVA [Concomitant]
     Active Substance: TIOTROPIUM BROMIDE MONOHYDRATE
  8. SERTRALINE HCL [Concomitant]
     Active Substance: SERTRALINE HYDROCHLORIDE
  9. CIALIS [Concomitant]
     Active Substance: TADALAFIL
  10. VITAMIN D3 [Concomitant]
     Active Substance: CHOLECALCIFEROL
  11. MAGNESIUM [Concomitant]
     Active Substance: MAGNESIUM
  12. ADVAIR HFA [Concomitant]
     Active Substance: FLUTICASONE PROPIONATE\SALMETEROL XINAFOATE
  13. ALFUZOSIN HCL ER [Concomitant]
  14. ASPIRIN EC [Concomitant]
     Active Substance: ASPIRIN
  15. MULTIVITAMIN [Concomitant]
     Active Substance: VITAMINS

REACTIONS (7)
  - Dyspnoea [None]
  - Myalgia [None]
  - Activities of daily living impaired [None]
  - Arthralgia [None]
  - Impaired driving ability [None]
  - Tremor [None]
  - Angina pectoris [None]

NARRATIVE: CASE EVENT DATE: 20150815
